FAERS Safety Report 5986016-2 (Version None)
Quarter: 2008Q4

REPORT INFORMATION
  Report Type: 
  Country: None (occurrence: None)
  Receive Date: 20081205
  Receipt Date: 20081205
  Transmission Date: 20090506
  Serious: Yes (Other)
  Sender: FDA-Public Use
  Company Number: None

PATIENT
  Age: 25 Year
  Sex: Female
  Weight: 102.0593 kg

DRUGS (1)
  1. MIRENA [Suspect]
     Indication: THROMBOSIS
     Dosage: INTRA-UTERINE
     Route: 015
     Dates: start: 20081203, end: 20081203

REACTIONS (5)
  - COMPLICATION OF DEVICE INSERTION [None]
  - DEFAECATION URGENCY [None]
  - FEELING HOT [None]
  - HYPERHIDROSIS [None]
  - PAIN [None]
